FAERS Safety Report 16995611 (Version 2)
Quarter: 2020Q1

REPORT INFORMATION
  Report Type: Spontaneous
  Country: US (occurrence: US)
  Receive Date: 20191105
  Receipt Date: 20200116
  Transmission Date: 20200409
  Serious: No
  Sender: FDA-Public Use
  Company Number: US-PFIZER INC-2019475380

PATIENT
  Age: 71 Year
  Sex: Female

DRUGS (1)
  1. SERTRALINE HCL [Suspect]
     Active Substance: SERTRALINE HYDROCHLORIDE
     Indication: DEPRESSION
     Dosage: UNK

REACTIONS (4)
  - Dizziness [Unknown]
  - Psychomotor hyperactivity [Unknown]
  - Feeling abnormal [Unknown]
  - Insomnia [Unknown]
